FAERS Safety Report 9632459 (Version 1)
Quarter: 2013Q4

REPORT INFORMATION
  Report Type: Spontaneous
  Country: TR (occurrence: None)
  Receive Date: 20131016
  Receipt Date: 20131016
  Transmission Date: 20140711
  Serious: No
  Sender: FDA-Public Use
  Company Number: 2013/191

PATIENT
  Age: 57 Year
  Sex: Female

DRUGS (1)
  1. IBANDRONATE [Suspect]
     Indication: OSTEOPOROSIS

REACTIONS (1)
  - Ventricular tachycardia [None]
